FAERS Safety Report 7768565-X (Version None)
Quarter: 2011Q3

REPORT INFORMATION
  Report Type: 
  Country: None (occurrence: None)
  Receive Date: 20110922
  Receipt Date: 20110429
  Transmission Date: 20111222
  Serious: No
  Sender: FDA-Public Use
  Company Number: US-ASTRAZENECA-2011SE25419

PATIENT
  Age: 57 Year
  Sex: Female
  Weight: 65.8 kg

DRUGS (4)
  1. SEROQUEL XR [Suspect]
     Indication: BIPOLAR DISORDER
     Route: 048
  2. WELLBUTRIN [Concomitant]
  3. SEROQUEL XR [Suspect]
     Route: 048
  4. XANAX [Concomitant]

REACTIONS (3)
  - ACTIVITIES OF DAILY LIVING IMPAIRED [None]
  - FATIGUE [None]
  - SOMNOLENCE [None]
